FAERS Safety Report 21651086 (Version 1)
Quarter: 2022Q4

REPORT INFORMATION
  Report Type: Report from Study
  Country: US (occurrence: US)
  Receive Date: 20221128
  Receipt Date: 20221128
  Transmission Date: 20230113
  Serious: No
  Sender: FDA-Public Use
  Company Number: US-ABBVIE-22K-163-4417811-00

PATIENT
  Age: 78 Year
  Sex: Male

DRUGS (2)
  1. IMBRUVICA [Suspect]
     Active Substance: IBRUTINIB
     Indication: Chronic lymphocytic leukaemia
     Dosage: LAST ADMIN DATE-2022
     Route: 048
     Dates: start: 202203
  2. IMBRUVICA [Suspect]
     Active Substance: IBRUTINIB
     Indication: Chronic lymphocytic leukaemia
     Dosage: TIME INTERVAL: 0.33333333 DAYS
     Route: 048
     Dates: start: 20220510

REACTIONS (17)
  - Feeling abnormal [Unknown]
  - White blood cell disorder [Unknown]
  - Scab [Unknown]
  - Nail infection [Unknown]
  - Hyperkeratosis [Unknown]
  - Ingrowing nail [Unknown]
  - Feeling abnormal [Unknown]
  - Nail disorder [Unknown]
  - Lymphocyte count decreased [Unknown]
  - COVID-19 [Unknown]
  - Haemoglobin decreased [Unknown]
  - Rash [Unknown]
  - Gastrooesophageal reflux disease [Unknown]
  - Pruritus [Unknown]
  - Contusion [Unknown]
  - Unevaluable event [Unknown]
  - Adverse drug reaction [Unknown]

NARRATIVE: CASE EVENT DATE: 20220501
